FAERS Safety Report 5709042-7 (Version None)
Quarter: 2008Q2

REPORT INFORMATION
  Report Type: 
  Country: None (occurrence: None)
  Receive Date: 20080416
  Receipt Date: 20080416
  Transmission Date: 20081010
  Serious: Yes (Hospitalization)
  Sender: FDA-Public Use
  Company Number: None

PATIENT
  Age: 82 Year
  Sex: Female
  Weight: 63 kg

DRUGS (7)
  1. DIGOXIN [Suspect]
     Indication: ATRIAL FIBRILLATION
     Dosage: 0.125 MG DAILY PO  (DURATION: CHRONIC)
     Route: 048
  2. AMBIEN [Concomitant]
  3. POTASSIUM CHLORIDE [Concomitant]
  4. XANAX [Concomitant]
  5. PAXIL [Concomitant]
  6. LYRICA [Concomitant]
  7. HYDROCHLOROTHIAZIDE [Concomitant]

REACTIONS (5)
  - ATRIOVENTRICULAR BLOCK SECOND DEGREE [None]
  - HYPOVOLAEMIA [None]
  - RENAL FAILURE ACUTE [None]
  - SYNCOPE [None]
  - THERAPEUTIC AGENT TOXICITY [None]
